FAERS Safety Report 4286223-3 (Version None)
Quarter: 2004Q1

REPORT INFORMATION
  Report Type: 
  Country: None (occurrence: None)
  Receive Date: 20040114
  Receipt Date: 20030207
  Transmission Date: 20041129
  Serious: Yes (Hospitalization)
  Sender: FDA-Public Use
  Company Number: 323604

PATIENT
  Age: 67 Year
  Sex: Female
  Weight: 62.1 kg

DRUGS (1)
  1. ROCEPHIN [Suspect]
     Indication: GROIN INFECTION
     Dosage: 2 GRAM DAILY INTRAVENOUS
     Route: 042
     Dates: start: 20020927, end: 20021008

REACTIONS (7)
  - ALANINE AMINOTRANSFERASE INCREASED [None]
  - ASPARTATE AMINOTRANSFERASE INCREASED [None]
  - BLOOD ALKALINE PHOSPHATASE INCREASED [None]
  - BLOOD BILIRUBIN INCREASED [None]
  - NAUSEA [None]
  - PRURITUS [None]
  - VOMITING [None]
